FAERS Safety Report 14492334 (Version 1)
Quarter: 2018Q1

REPORT INFORMATION
  Report Type: Spontaneous
  Country: US (occurrence: US)
  Receive Date: 20180205
  Receipt Date: 20180205
  Transmission Date: 20180509
  Serious: No
  Sender: FDA-Public Use
  Company Number: None

PATIENT
  Age: 62 Year
  Sex: Female
  Weight: 45.36 kg

DRUGS (1)
  1. MORPHINE SULFATE ER 15MG [Suspect]
     Active Substance: MORPHINE SULFATE
     Indication: SPINAL PAIN
     Route: 048
     Dates: start: 20170211, end: 20170221

REACTIONS (2)
  - Rash [None]
  - Contusion [None]

NARRATIVE: CASE EVENT DATE: 20170221
